FAERS Safety Report 22399334 (Version 1)
Quarter: 2023Q2

REPORT INFORMATION
  Report Type: Spontaneous
  Country: US (occurrence: US)
  Receive Date: 20230602
  Receipt Date: 20230602
  Transmission Date: 20230721
  Serious: No
  Sender: FDA-Public Use
  Company Number: ae005US23

PATIENT
  Age: 35 Year
  Sex: Female
  Weight: 113.4 kg

DRUGS (3)
  1. ASCLERA [Suspect]
     Active Substance: POLIDOCANOL
     Indication: Spider vein
     Dosage: 2.5-3.0
     Dates: start: 20230523, end: 20230523
  2. ASCLERA [Suspect]
     Active Substance: POLIDOCANOL
     Dates: start: 20230523, end: 20230523
  3. ASPIRIN [Concomitant]
     Active Substance: ASPIRIN
     Indication: Superficial vein thrombosis

REACTIONS (2)
  - Superficial vein thrombosis [Unknown]
  - Limb discomfort [Recovered/Resolved]
